FAERS Safety Report 9444651 (Version 4)
Quarter: 2013Q3

REPORT INFORMATION
  Report Type: Spontaneous
  Country: JP (occurrence: JP)
  Receive Date: 20130807
  Receipt Date: 20130911
  Transmission Date: 20140515
  Serious: Yes (Other)
  Sender: FDA-Public Use
  Company Number: JP-PFIZER INC-2013228044

PATIENT
  Age: 68 Year
  Sex: Female

DRUGS (3)
  1. LYRICA [Suspect]
     Indication: HYPOAESTHESIA
     Dosage: 25 MG, 1X/DAY
     Route: 048
     Dates: start: 2013
  2. LYRICA [Suspect]
     Dosage: 100 MG, 1X/DAY (2 CAPSULES OF 25MG TWICE DAILY AFTER BREAKFAST AND DINNER)
     Route: 048
     Dates: start: 20130608
  3. NEUPRO [Suspect]
     Indication: PARAESTHESIA
     Route: 061

REACTIONS (5)
  - Loss of control of legs [Not Recovered/Not Resolved]
  - Paraesthesia [Recovered/Resolved]
  - Somnolence [Recovered/Resolved]
  - Joint crepitation [Not Recovered/Not Resolved]
  - Weight increased [Unknown]
